FAERS Safety Report 19967406 (Version 1)
Quarter: 2021Q4

REPORT INFORMATION
  Report Type: Spontaneous
  Country: US (occurrence: US)
  Receive Date: 20211014
  Receipt Date: 20211014
  Transmission Date: 20220303
  Serious: Yes (Hospitalization)
  Sender: FDA-Public Use
  Company Number: None

PATIENT
  Age: 39 Year
  Sex: Female

DRUGS (6)
  1. PULMOZYME [Suspect]
     Active Substance: DORNASE ALFA
     Indication: Cystic fibrosis
     Dosage: ?          OTHER DOSE:2.5MG/2.5ML;
     Route: 055
     Dates: start: 20190524
  2. PULMOZYME [Suspect]
     Active Substance: DORNASE ALFA
     Dosage: ?          OTHER ROUTE:INH BY AMP BY NEB
  3. PARI LC PLUS NEUBLIZER [Concomitant]
  4. PARI LC SPRINT NEBULIZER [Concomitant]
  5. PARI PRONEB MAX L PLUS [Concomitant]
  6. TRIKAFTA [Concomitant]
     Active Substance: ELEXACAFTOR\IVACAFTOR\TEZACAFTOR

REACTIONS (1)
  - Pneumonia [None]

NARRATIVE: CASE EVENT DATE: 20210930
